FAERS Safety Report 8470257 (Version 3)
Quarter: 2014Q1

REPORT INFORMATION
  Report Type: Report from Study
  Country: DE (occurrence: DE)
  Receive Date: 20120321
  Receipt Date: 20140117
  Transmission Date: 20141002
  Serious: Yes (Other)
  Sender: FDA-Public Use
  Company Number: DE-JNJFOC-20120307806

PATIENT
  Age: 46 Year
  Sex: Female
  Weight: 60 kg

DRUGS (5)
  1. STELARA [Suspect]
     Indication: PSORIASIS
     Route: 058
     Dates: start: 20100825, end: 201012
  2. PREDNISOLON [Concomitant]
     Route: 048
  3. VERAHEXAL [Concomitant]
     Route: 048
  4. MICARDIS [Concomitant]
     Route: 048
  5. PANTOZOL [Concomitant]
     Route: 048

REACTIONS (1)
  - Anal abscess [Recovered/Resolved]
